FAERS Safety Report 21844213 (Version 2)
Quarter: 2023Q1

REPORT INFORMATION
  Report Type: Spontaneous
  Country: IT (occurrence: IT)
  Receive Date: 20230110
  Receipt Date: 20230227
  Transmission Date: 20230418
  Serious: Yes (Hospitalization)
  Sender: FDA-Public Use
  Company Number: IT-ROCHE-3254421

PATIENT
  Age: 79 Year
  Sex: Female
  Weight: 70 kg

DRUGS (20)
  1. LETROZOLE [Suspect]
     Active Substance: LETROZOLE
     Indication: HER2 positive breast cancer
     Dosage: 2.5 MG, QD (MOST RECENT DOSE PRIOR TO AE 02 MAR 2020, FREQUENCY ONCE)
     Route: 048
     Dates: start: 20191030
  2. PACLITAXEL [Suspect]
     Active Substance: PACLITAXEL
     Indication: HER2 positive breast cancer
     Dosage: 80 MG/M2, QW (MOST RECENT DOSE PRIOR TO AE 06 SEP 2019)
     Route: 065
     Dates: start: 20190509, end: 20190906
  3. CAPECITABINE [Suspect]
     Active Substance: CAPECITABINE
     Indication: HER2 positive breast cancer
     Dosage: 2000 MG, Q2W (2000 MG ONCE IN 2 WEEKSMOST RECENT DOSE PRIOR TO THE EVENT: 1/MAR/2021 )
     Route: 048
     Dates: start: 20200702, end: 20200723
  4. CAPECITABINE [Suspect]
     Active Substance: CAPECITABINE
     Dosage: 3000 MG/KG, QD (3000 MG/KG DAILY )
     Route: 048
     Dates: start: 20200723, end: 20200810
  5. CAPECITABINE [Suspect]
     Active Substance: CAPECITABINE
     Dosage: 3000 MG/KG, QD (3000 MG/KG DAILY)
     Route: 048
     Dates: start: 20200911, end: 20210301
  6. CAPECITABINE [Suspect]
     Active Substance: CAPECITABINE
     Dosage: 2000 MG, QD (2000 MG DAILY)
     Route: 048
     Dates: start: 20210301
  7. PERTUZUMAB [Suspect]
     Active Substance: PERTUZUMAB
     Indication: HER2 positive breast cancer
     Dosage: 420 MG, Q3W (MOST RECENT DOSE PRIOR TO AE 14/FEB/2020)
     Route: 042
     Dates: start: 20190530
  8. TRASTUZUMAB [Suspect]
     Active Substance: TRASTUZUMAB
     Indication: HER2 positive breast cancer
     Dosage: 6 MG/KG, Q3W (MOST RECENT DOSE PRIOR TO AE 02 JUL 2020 ROA: INTRAVENOUS (NOT OTHERWISE SPECIFIED)
     Route: 042
     Dates: start: 20190530, end: 20200214
  9. TRASTUZUMAB [Suspect]
     Active Substance: TRASTUZUMAB
     Dosage: 6 MG/KG, Q3W (6 MG/KG, ONCE IN 3 WEEKS)
     Route: 042
     Dates: start: 20200702, end: 20210719
  10. ADO-TRASTUZUMAB EMTANSINE [Suspect]
     Active Substance: ADO-TRASTUZUMAB EMTANSINE
     Indication: HER2 positive breast cancer
     Dosage: 252 MG/KG, Q3W (252 MG/KG ONCE IN 3 WEEKSMOST RECENT DOSE PRIOR TO AE 31/MAR/2020 )
     Route: 042
     Dates: start: 20200310
  11. LEVOTHYROXINE SODIUM [Concomitant]
     Active Substance: LEVOTHYROXINE SODIUM
     Indication: Product used for unknown indication
     Dosage: UNK (ONGING)
     Route: 065
  12. PREGABALIN [Concomitant]
     Active Substance: PREGABALIN
     Indication: Product used for unknown indication
     Dosage: UNK (ONGOING)
     Route: 065
     Dates: start: 20210119
  13. NORMAST [Concomitant]
     Indication: Product used for unknown indication
     Dosage: UNK (ONGOING)
     Route: 065
     Dates: start: 20210119
  14. LEVACECARNINE HYDROCHLORIDE [Concomitant]
     Active Substance: LEVACECARNINE HYDROCHLORIDE
     Indication: Product used for unknown indication
     Dosage: UNK (ONGING)
     Route: 065
     Dates: start: 20210119
  15. CITALOPRAM [Concomitant]
     Active Substance: CITALOPRAM HYDROBROMIDE
     Indication: Product used for unknown indication
     Dosage: UNK (ONGING)
     Route: 065
     Dates: start: 20200715
  16. LOPERAMIDE HYDROCHLORIDE [Concomitant]
     Active Substance: LOPERAMIDE HYDROCHLORIDE
     Indication: Product used for unknown indication
     Dosage: UNK (ONGING)
     Route: 065
  17. ACETAMINOPHEN\OXYCODONE HYDROCHLORIDE [Concomitant]
     Active Substance: ACETAMINOPHEN\OXYCODONE HYDROCHLORIDE
     Indication: Product used for unknown indication
     Dosage: UNK (ONGOING)
     Route: 065
     Dates: start: 20201022
  18. LACTULOSE [Concomitant]
     Active Substance: LACTULOSE
     Indication: Product used for unknown indication
     Dosage: UNK
     Route: 065
  19. TAZAROTENE [Concomitant]
     Active Substance: TAZAROTENE
     Indication: Product used for unknown indication
     Dosage: UNK
     Route: 065
  20. NEURONTIN [Concomitant]
     Active Substance: GABAPENTIN
     Indication: Product used for unknown indication
     Dosage: UNK
     Route: 065

REACTIONS (2)
  - Anal haemorrhage [Recovered/Resolved]
  - Anal haemorrhage [Recovered/Resolved]

NARRATIVE: CASE EVENT DATE: 20221028
